FAERS Safety Report 16566670 (Version 1)
Quarter: 2019Q3

REPORT INFORMATION
  Report Type: Spontaneous
  Country: CN (occurrence: CN)
  Receive Date: 20190712
  Receipt Date: 20190712
  Transmission Date: 20191004
  Serious: Yes (Life-Threatening)
  Sender: FDA-Public Use
  Company Number: CN-BAXTER-2019BAX013335

PATIENT
  Age: 77 Year
  Sex: Male
  Weight: 58 kg

DRUGS (2)
  1. 20% MANNITOL INJECTION [Suspect]
     Active Substance: MANNITOL
     Indication: HAEMATOMA
  2. 20% MANNITOL INJECTION [Suspect]
     Active Substance: MANNITOL
     Indication: SWELLING
     Route: 041
     Dates: start: 20190628, end: 20190629

REACTIONS (3)
  - Anaphylactic shock [Recovering/Resolving]
  - Haematoma [Unknown]
  - Condition aggravated [Unknown]

NARRATIVE: CASE EVENT DATE: 2019
